FAERS Safety Report 13905524 (Version 2)
Quarter: 2017Q4

REPORT INFORMATION
  Report Type: Spontaneous
  Country: BR (occurrence: BR)
  Receive Date: 20170825
  Receipt Date: 20171004
  Transmission Date: 20180320
  Serious: Yes (Other)
  Sender: FDA-Public Use
  Company Number: PHHY2017BR123911

PATIENT
  Sex: Male
  Weight: 60 kg

DRUGS (1)
  1. VITALUX PLUS OMEGA 03 (ALC) [Suspect]
     Active Substance: MINERALS\OMEGA-3 FATTY ACIDS\VITAMINS
     Indication: INTRAOCULAR PRESSURE INCREASED
     Dosage: 1 DF, QD
     Route: 048

REACTIONS (7)
  - Dysphonia [Unknown]
  - Cough [Unknown]
  - Haematemesis [Recovered/Resolved]
  - Foreign body in respiratory tract [Unknown]
  - Discomfort [Not Recovered/Not Resolved]
  - Chest pain [Unknown]
  - Vomiting [Unknown]
